FAERS Safety Report 10351007 (Version 1)
Quarter: 2014Q3

REPORT INFORMATION
  Report Type: Spontaneous
  Country: IT (occurrence: IT)
  Receive Date: 20140730
  Receipt Date: 20140730
  Transmission Date: 20150326
  Serious: Yes (Hospitalization)
  Sender: FDA-Public Use
  Company Number: IT-TEVA-496326ISR

PATIENT
  Age: 24 Year
  Sex: Female

DRUGS (4)
  1. DICLOFENAC [Suspect]
     Active Substance: DICLOFENAC
     Indication: DRUG ABUSE
     Route: 048
     Dates: start: 20140331, end: 20140331
  2. TACHIPIRINA - 500 MG COMPRESSE - AZIENDE CHIMICHE RIUNITE ANGELINI [Suspect]
     Active Substance: ACETAMINOPHEN
     Indication: DRUG ABUSE
     Route: 048
     Dates: start: 20140331, end: 20140331
  3. IBUPROFEN. [Suspect]
     Active Substance: IBUPROFEN
     Indication: DRUG ABUSE
     Route: 048
     Dates: start: 20140331, end: 20140331
  4. AMOXICILLIN. [Suspect]
     Active Substance: AMOXICILLIN
     Indication: DRUG ABUSE
     Route: 048
     Dates: start: 20140331, end: 20140331

REACTIONS (2)
  - Sopor [Recovered/Resolved]
  - Drug abuse [Recovered/Resolved]

NARRATIVE: CASE EVENT DATE: 20140331
